FAERS Safety Report 7619866-7 (Version None)
Quarter: 2011Q3

REPORT INFORMATION
  Report Type: 
  Country: None (occurrence: None)
  Receive Date: 20110719
  Receipt Date: 20110705
  Transmission Date: 20111222
  Serious: Yes (Hospitalization)
  Sender: FDA-Public Use
  Company Number: IL-SANOFI-AVENTIS-2011SA044079

PATIENT
  Age: 75 Year
  Sex: Male
  Weight: 121 kg

DRUGS (8)
  1. DRONEDARONE HCL [Suspect]
     Indication: ATRIAL FIBRILLATION
     Route: 048
     Dates: start: 20110309, end: 20110420
  2. ASPIRIN [Concomitant]
     Route: 065
  3. FUROSEMIDE [Concomitant]
     Route: 065
  4. DOXAZOSIN MESYLATE [Concomitant]
     Route: 065
  5. VERAPAMIL [Concomitant]
     Route: 065
  6. CANDESARTAN CILEXETIL [Concomitant]
     Route: 065
  7. SIMVASTATIN [Concomitant]
     Route: 065
  8. GLUBEN [Concomitant]
     Route: 065

REACTIONS (1)
  - CARDIAC FAILURE [None]
